FAERS Safety Report 8056174-7 (Version None)
Quarter: 2012Q1

REPORT INFORMATION
  Report Type: 
  Country: None (occurrence: None)
  Receive Date: 20120119
  Receipt Date: 20120116
  Transmission Date: 20120608
  Serious: No
  Sender: FDA-Public Use
  Company Number: US-BAYER-2012-005630

PATIENT
  Age: 53 Year
  Sex: Female
  Weight: 82 kg

DRUGS (6)
  1. GLUCOSAMINE SULFATE W/CHONDROITIN [Concomitant]
  2. FOLIC ACID [Concomitant]
  3. ALEVE (CAPLET) [Suspect]
     Indication: RHEUMATOID ARTHRITIS
     Dosage: UNK UNK, QD
     Route: 048
  4. ENBREL [Concomitant]
  5. CALTRATE [CALCIUM CARBONATE] [Concomitant]
  6. METHOTREXATE [Concomitant]

REACTIONS (1)
  - NO ADVERSE EVENT [None]
